FAERS Safety Report 5360235-0 (Version None)
Quarter: 2007Q2

REPORT INFORMATION
  Report Type: 
  Country: None (occurrence: None)
  Receive Date: 20070618
  Receipt Date: 20070611
  Transmission Date: 20071010
  Serious: Yes (Hospitalization)
  Sender: FDA-Public Use
  Company Number: FR-ELI_LILLY_AND_COMPANY-FR200706002336

PATIENT
  Age: 41 Year
  Sex: Male

DRUGS (7)
  1. ZYPREXA [Suspect]
     Indication: PSYCHOTIC DISORDER
     Dosage: 10 MG, DAILY (1/D)
     Route: 048
     Dates: start: 20070125
  2. METHADONE HCL [Interacting]
     Indication: DRUG DEPENDENCE
     Dosage: 65 MG, DAILY (1/D)
     Route: 048
  3. REVIA [Interacting]
     Dosage: 100 MG, OTHER
     Route: 048
     Dates: start: 20070302, end: 20070302
  4. REVIA [Interacting]
     Dosage: 50 MG, OTHER
     Route: 048
     Dates: start: 20070325, end: 20070325
  5. KEPPRA [Interacting]
     Dosage: 500 MG, 3/D
     Route: 048
  6. EFFEXOR [Interacting]
     Indication: DEPRESSION
     Dosage: 75 MG, 2/D
     Route: 048
     Dates: start: 20051209
  7. ATHYMIL [Interacting]
     Indication: DEPRESSION
     Dosage: 60 MG, DAILY (1/D)
     Route: 048

REACTIONS (2)
  - DRUG INTERACTION [None]
  - DRUG WITHDRAWAL SYNDROME [None]
